FAERS Safety Report 15267992 (Version 1)
Quarter: 2018Q3

REPORT INFORMATION
  Report Type: Spontaneous
  Country: US (occurrence: US)
  Receive Date: 20180725
  Receipt Date: 20180725
  Transmission Date: 20181010
  Serious: Yes (Hospitalization)
  Sender: FDA-Public Use
  Company Number: None

PATIENT
  Age: 59 Year
  Sex: Male
  Weight: 95.7 kg

DRUGS (1)
  1. OMNIPAQUE [Suspect]
     Active Substance: IOHEXOL
     Indication: CATHETER PLACEMENT
     Dosage: ?          OTHER FREQUENCY:ONCE;?
     Route: 022
     Dates: start: 20180625, end: 20180625

REACTIONS (3)
  - Heart rate decreased [None]
  - Blood pressure decreased [None]
  - Anaphylactic reaction [None]

NARRATIVE: CASE EVENT DATE: 20180625
